FAERS Safety Report 24259755 (Version 2)
Quarter: 2024Q3

REPORT INFORMATION
  Report Type: Spontaneous
  Country: GR (occurrence: GR)
  Receive Date: 20240828
  Receipt Date: 20240924
  Transmission Date: 20241016
  Serious: Yes (Death, Hospitalization, Other)
  Sender: BAXTER
  Company Number: None

PATIENT
  Age: 75 Year
  Sex: Male

DRUGS (3)
  1. CYCLOPHOSPHAMIDE [Interacting]
     Active Substance: CYCLOPHOSPHAMIDE
     Indication: Glomerulonephritis membranous
     Dosage: UNK
     Route: 065
  2. METHYLPREDNISOLONE [Interacting]
     Active Substance: METHYLPREDNISOLONE
     Indication: Glomerulonephritis membranous
     Route: 065
  3. CYCLOSPORINE [Interacting]
     Active Substance: CYCLOSPORINE
     Indication: Glomerulonephritis membranous
     Route: 065

REACTIONS (13)
  - Pulmonary nocardiosis [Fatal]
  - Nocardiosis [Fatal]
  - Brain abscess [Fatal]
  - Subcutaneous abscess [Fatal]
  - Muscle abscess [Fatal]
  - Labelled drug-drug interaction issue [Unknown]
  - Product use in unapproved indication [Unknown]
  - Productive cough [Unknown]
  - Klebsiella infection [Unknown]
  - Respiratory tract infection bacterial [Unknown]
  - Dyspnoea [Unknown]
  - Hypoxia [Unknown]
  - Fatigue [Unknown]
